FAERS Safety Report 17872206 (Version 2)
Quarter: 2020Q3

REPORT INFORMATION
  Report Type: Spontaneous
  Country: US (occurrence: US)
  Receive Date: 20200608
  Receipt Date: 20200701
  Transmission Date: 20201103
  Serious: No
  Sender: FDA-Public Use
  Company Number: US-AMGEN INC.-USASP2020089280

PATIENT
  Age: 57 Year
  Sex: Female

DRUGS (6)
  1. NADOLOL. [Concomitant]
     Active Substance: NADOLOL
     Dosage: (OVER A YEAR)
  2. PROTACE [Concomitant]
     Dosage: (OVER A YEAR)
  3. AIMOVIG [Suspect]
     Active Substance: ERENUMAB-AOOE
     Indication: MIGRAINE PROPHYLAXIS
     Dosage: 70 MILLIGRAM, QMO
     Route: 065
     Dates: start: 2018
  4. CLONAZEPAM. [Concomitant]
     Active Substance: CLONAZEPAM
     Dosage: (OVER A YEAR)
  5. BUPROPION. [Concomitant]
     Active Substance: BUPROPION
     Dosage: (OVER A YEAR)
  6. IMITREX [Concomitant]
     Active Substance: SUMATRIPTAN SUCCINATE
     Dosage: (YEARS)

REACTIONS (5)
  - Fall [Not Recovered/Not Resolved]
  - Hot flush [Recovered/Resolved]
  - Blood pressure increased [Not Recovered/Not Resolved]
  - Night sweats [Recovered/Resolved]
  - Dizziness [Not Recovered/Not Resolved]

NARRATIVE: CASE EVENT DATE: 2018
